FAERS Safety Report 5825676-3 (Version None)
Quarter: 2008Q3

REPORT INFORMATION
  Report Type: 
  Country: None (occurrence: None)
  Receive Date: 20080722
  Receipt Date: 20080707
  Transmission Date: 20090109
  Serious: Yes (Other)
  Sender: FDA-Public Use
  Company Number: US023390

PATIENT
  Age: 55 Year
  Sex: Male

DRUGS (3)
  1. AMRIX [Suspect]
     Indication: ARTHRALGIA
     Dosage: 30 MG QD ORAL
     Route: 048
     Dates: start: 20080424
  2. AMRIX [Suspect]
     Indication: MUSCLE SPASMS
     Dosage: 30 MG QD ORAL
     Route: 048
     Dates: start: 20080424
  3. AMRIX [Suspect]
     Indication: PROCEDURAL PAIN
     Dosage: 30 MG QD ORAL
     Route: 048
     Dates: start: 20080424

REACTIONS (12)
  - AMNESIA [None]
  - DRUG HYPERSENSITIVITY [None]
  - DYSKINESIA [None]
  - EXTENSOR PLANTAR RESPONSE [None]
  - EYE ROLLING [None]
  - HEMIPARESIS [None]
  - INCORRECT DOSE ADMINISTERED [None]
  - IRRITABILITY [None]
  - MEDICATION ERROR [None]
  - PARAESTHESIA [None]
  - TIC [None]
  - TREMOR [None]
